FAERS Safety Report 4651617-0 (Version None)
Quarter: 2005Q2

REPORT INFORMATION
  Report Type: 
  Country: None (occurrence: None)
  Receive Date: 20050404
  Receipt Date: 20041108
  Transmission Date: 20051028
  Serious: No
  Sender: FDA-Public Use
  Company Number: USA041183492

PATIENT
  Age: 45 Year
  Sex: Female

DRUGS (2)
  1. CYMBALTA [Suspect]
     Indication: DEPRESSION
     Dosage: 30 MG
     Dates: start: 20041105
  2. NEFAZODONE HCL [Concomitant]

REACTIONS (3)
  - FEELING JITTERY [None]
  - INSOMNIA [None]
  - NERVOUSNESS [None]
